FAERS Safety Report 9833509 (Version 2)
Quarter: 2014Q1

REPORT INFORMATION
  Report Type: Spontaneous
  Country: US (occurrence: US)
  Receive Date: 20140122
  Receipt Date: 20140210
  Transmission Date: 20141002
  Serious: No
  Sender: FDA-Public Use
  Company Number: US-009507513-1401USA007401

PATIENT
  Age: 58 Year
  Sex: Male

DRUGS (2)
  1. THERAPY UNSPECIFIED [Suspect]
  2. LIPTRUZET [Suspect]
     Dosage: UNK
     Route: 048
     Dates: start: 201312

REACTIONS (2)
  - Neck pain [Unknown]
  - Myopathy [Unknown]
